FAERS Safety Report 13748625 (Version 1)
Quarter: 2017Q3

REPORT INFORMATION
  Report Type: Spontaneous
  Country: US (occurrence: US)
  Receive Date: 20170713
  Receipt Date: 20170713
  Transmission Date: 20171127
  Serious: No
  Sender: FDA-Public Use
  Company Number: US-AMGEN-USASP2017103229

PATIENT
  Age: 11 Year
  Sex: Female

DRUGS (1)
  1. ENBREL [Suspect]
     Active Substance: ETANERCEPT
     Indication: JUVENILE IDIOPATHIC ARTHRITIS
     Dosage: 1.8 ML, QWK
     Route: 065
     Dates: start: 201702

REACTIONS (2)
  - Product preparation error [Unknown]
  - Drug dose omission [Unknown]

NARRATIVE: CASE EVENT DATE: 2017
